FAERS Safety Report 5890271-7 (Version None)
Quarter: 2008Q3

REPORT INFORMATION
  Report Type: 
  Country: None (occurrence: None)
  Receive Date: 20080919
  Receipt Date: 20080908
  Transmission Date: 20090109
  Serious: Yes (Hospitalization, Other)
  Sender: FDA-Public Use
  Company Number: US-PFIZER INC-2008078469

PATIENT
  Sex: Female
  Weight: 126.1 kg

DRUGS (3)
  1. CHANTIX [Suspect]
     Indication: SMOKING CESSATION THERAPY
     Route: 048
     Dates: start: 20080811, end: 20080822
  2. DRUG, UNSPECIFIED [Concomitant]
  3. ANTIDEPRESSANTS [Concomitant]

REACTIONS (4)
  - ASPIRATION [None]
  - LOSS OF CONSCIOUSNESS [None]
  - SUICIDAL IDEATION [None]
  - UNEVALUABLE EVENT [None]
